FAERS Safety Report 8341499-8 (Version None)
Quarter: 2012Q2

REPORT INFORMATION
  Report Type: 
  Country: None (occurrence: None)
  Receive Date: 20120507
  Receipt Date: 20100116
  Transmission Date: 20120825
  Serious: No
  Sender: FDA-Public Use
  Company Number: US-TEVA-2010000280

PATIENT
  Age: 77 Year
  Sex: Female

DRUGS (2)
  1. TREANDA [Suspect]
     Indication: NON-HODGKIN'S LYMPHOMA
     Route: 042
     Dates: start: 20080501
  2. TREANDA [Suspect]
     Indication: B-CELL LYMPHOMA

REACTIONS (2)
  - URINARY TRACT INFECTION [None]
  - NEUTROPHIL COUNT DECREASED [None]
